FAERS Safety Report 13305050 (Version 1)
Quarter: 2017Q1

REPORT INFORMATION
  Report Type: Spontaneous
  Country: US (occurrence: US)
  Receive Date: 20170307
  Receipt Date: 20170307
  Transmission Date: 20170428
  Serious: Yes (Hospitalization)
  Sender: FDA-Public Use
  Company Number: None

PATIENT
  Age: 76 Year
  Sex: Female

DRUGS (9)
  1. ASPIRIN. [Concomitant]
     Active Substance: ASPIRIN
  2. MULTI VITAMIN [Concomitant]
     Active Substance: VITAMINS
  3. METOPRL [Concomitant]
  4. LASIX [Concomitant]
     Active Substance: FUROSEMIDE
  5. ZETIA [Concomitant]
     Active Substance: EZETIMIBE
  6. ASA/CAFF [Concomitant]
  7. AMLOD/ATORVA [Concomitant]
  8. ARANESP [Suspect]
     Active Substance: DARBEPOETIN ALFA
     Indication: ANAEMIA
     Route: 058
     Dates: start: 20140531
  9. LOPRESS [Concomitant]

REACTIONS (1)
  - Drug dose omission [None]

NARRATIVE: CASE EVENT DATE: 201702
